FAERS Safety Report 9053397 (Version 3)
Quarter: 2013Q4

REPORT INFORMATION
  Report Type: Spontaneous
  Country: US (occurrence: US)
  Receive Date: 20130205
  Receipt Date: 20131024
  Transmission Date: 20140711
  Serious: Yes (Hospitalization, Other)
  Sender: FDA-Public Use
  Company Number: US-BAYER-2013-012174

PATIENT
  Age: 35 Year
  Sex: Female
  Weight: 54.42 kg

DRUGS (6)
  1. MIRENA [Suspect]
     Indication: CONTRACEPTION
     Dosage: 20 MCG/24HR, CONT
     Route: 015
     Dates: start: 200803, end: 20100909
  2. MIRENA [Suspect]
     Indication: CONTRACEPTION
     Dosage: 20 MCG/24HR, CONT
     Route: 015
     Dates: start: 20101104
  3. SINGULAIR [Concomitant]
  4. AMOXICILLIN [Concomitant]
  5. NEOMYCIN [NEOMYCIN] [Concomitant]
  6. POLYMYXIN [Concomitant]

REACTIONS (5)
  - Medical device complication [None]
  - Embedded device [None]
  - Pain [None]
  - Injury [None]
  - Genital haemorrhage [None]
